FAERS Safety Report 4299228-3 (Version None)
Quarter: 2004Q1

REPORT INFORMATION
  Report Type: 
  Country: None (occurrence: None)
  Receive Date: 20040217
  Receipt Date: 20040217
  Transmission Date: 20041129
  Serious: Yes (Life-Threatening, Hospitalization)
  Sender: FDA-Public Use
  Company Number: None

PATIENT
  Sex: Female
  Weight: 77.1115 kg

DRUGS (3)
  1. BEXTRA [Suspect]
     Indication: INTERVERTEBRAL DISC DISORDER
     Dosage: 1 TABLET QD OCCLUSIVE DR
     Route: 046
     Dates: start: 20030901, end: 20030206
  2. CORTISONE INJECTION [Concomitant]
  3. EPIDURAL STEROIDS [Concomitant]

REACTIONS (1)
  - STEVENS-JOHNSON SYNDROME [None]
